FAERS Safety Report 13261405 (Version 4)
Quarter: 2019Q1

REPORT INFORMATION
  Report Type: Spontaneous
  Country: US (occurrence: US)
  Receive Date: 20170222
  Receipt Date: 20190124
  Transmission Date: 20190417
  Serious: Yes (Other)
  Sender: FDA-Public Use
  Company Number: US-PFIZER INC-2017075276

PATIENT
  Age: 46 Year
  Sex: Male

DRUGS (1)
  1. LYRICA [Suspect]
     Active Substance: PREGABALIN
     Dosage: 150 MG, UNK

REACTIONS (9)
  - Gait inability [Unknown]
  - Withdrawal syndrome [Unknown]
  - Pain [Unknown]
  - Hernia [Unknown]
  - Pain in extremity [Unknown]
  - Dry mouth [Unknown]
  - Somnolence [Unknown]
  - Suicidal behaviour [Unknown]
  - Constipation [Unknown]
